FAERS Safety Report 21516782 (Version 1)
Quarter: 2022Q4

REPORT INFORMATION
  Report Type: Spontaneous
  Country: SA (occurrence: SA)
  Receive Date: 20221028
  Receipt Date: 20221028
  Transmission Date: 20230113
  Serious: Yes (Hospitalization)
  Sender: FDA-Public Use
  Company Number: SA-BAUSCHBL-2022BNL001284

PATIENT
  Age: 2 Month
  Sex: Male

DRUGS (6)
  1. GENTAMICIN [Suspect]
     Active Substance: GENTAMICIN
     Indication: Necrotising colitis
     Dosage: EMPIRICAL 7 DAYS OF ANTIBIOTICS (AMPICILLIN AND GENTAMICIN)
     Route: 065
  2. GENTAMICIN [Suspect]
     Active Substance: GENTAMICIN
     Indication: Sepsis neonatal
     Route: 065
  3. AMPICILLIN [Suspect]
     Active Substance: AMPICILLIN
     Indication: Necrotising colitis
     Dosage: EMPIRICAL 7 DAYS OF ANTIBIOTICS (AMPICILLIN AND GENTAMICIN)
     Route: 065
  4. CLOXACILLIN [Suspect]
     Active Substance: CLOXACILLIN
     Indication: Sepsis neonatal
     Route: 065
  5. VANCOMYCIN [Suspect]
     Active Substance: VANCOMYCIN
     Indication: Staphylococcal sepsis
     Route: 065
  6. IBUPROFEN [Concomitant]
     Active Substance: IBUPROFEN
     Indication: Patent ductus arteriosus
     Dosage: 2 COUSES
     Route: 065

REACTIONS (1)
  - Bacteraemia [Recovered/Resolved]
